FAERS Safety Report 8654903 (Version 5)
Quarter: 2012Q4

REPORT INFORMATION
  Report Type: 
  Country: US (occurrence: US)
  Receive Date: 20120709
  Receipt Date: 20121019
  Transmission Date: 20130627
  Serious: Yes (Other)
  Sender: FDA-Public Use
  Company Number: US-BAYER-2012-067797

PATIENT
  Age: 48 Year
  Sex: Female
  Weight: 68 kg

DRUGS (5)
  1. BETASERON [Suspect]
     Indication: RELAPSING-REMITTING MULTIPLE SCLEROSIS
     Dosage: 0.25 mg, QOD
     Route: 058
     Dates: start: 200711, end: 201203
  2. COPAXONE [Concomitant]
     Dosage: 20 mg, UNK
     Dates: start: 201206
  3. TOPAMAX [Concomitant]
     Dosage: 150 mg, UNK
  4. HYDROCODONE [Concomitant]
     Dosage: 1 (5/500), PRN
  5. SUMATRIPTAN [Concomitant]
     Dosage: 100 mg, PRN

REACTIONS (2)
  - Multiple sclerosis [None]
  - Influenza like illness [None]
